FAERS Safety Report 4494196-3 (Version None)
Quarter: 2004Q4

REPORT INFORMATION
  Report Type: 
  Country: None (occurrence: None)
  Receive Date: 20041105
  Receipt Date: 20041026
  Transmission Date: 20050328
  Serious: Yes (Other)
  Sender: FDA-Public Use
  Company Number: FR-ROCHE-384497

PATIENT
  Sex: Male

DRUGS (4)
  1. RIVOTRIL [Suspect]
     Indication: SEDATION
     Route: 048
  2. LOXAPINE HCL [Concomitant]
  3. NOZINAN [Concomitant]
  4. HALDOL [Concomitant]

REACTIONS (1)
  - TOXIC SKIN ERUPTION [None]
